FAERS Safety Report 8936000 (Version 3)
Quarter: 2013Q2

REPORT INFORMATION
  Report Type: Spontaneous
  Country: US (occurrence: US)
  Receive Date: 20121130
  Receipt Date: 20130411
  Transmission Date: 20140414
  Serious: No
  Sender: FDA-Public Use
  Company Number: US-PFIZER INC-2012299559

PATIENT
  Age: 59 Year
  Sex: Male
  Weight: 68.03 kg

DRUGS (2)
  1. LIPITOR [Suspect]
     Indication: BLOOD CHOLESTEROL INCREASED
     Dosage: 40 MG, ONCE A DAY
     Route: 048
  2. PROCARDIA XL [Suspect]
     Indication: HYPERTENSION
     Dosage: 60 MG, ONCE A DAY
     Route: 048

REACTIONS (1)
  - Nasopharyngitis [Recovering/Resolving]
